FAERS Safety Report 23021717 (Version 1)
Quarter: 2023Q4

REPORT INFORMATION
  Report Type: Report from Study
  Country: BR (occurrence: BR)
  Receive Date: 20231003
  Receipt Date: 20231003
  Transmission Date: 20240109
  Serious: Yes (Hospitalization)
  Sender: FDA-Public Use
  Company Number: BR-JNJFOC-20220612546

PATIENT
  Age: 30 Year
  Sex: Female
  Weight: 99.1 kg

DRUGS (2)
  1. USTEKINUMAB [Suspect]
     Active Substance: USTEKINUMAB
     Indication: Crohn^s disease
     Route: 042
     Dates: start: 20211214, end: 20220111
  2. PREDNISONE [Concomitant]
     Active Substance: PREDNISONE
     Route: 048
     Dates: start: 20220321

REACTIONS (1)
  - Abdominal sepsis [Recovered/Resolved with Sequelae]

NARRATIVE: CASE EVENT DATE: 20220314
